FAERS Safety Report 17908860 (Version 1)
Quarter: 2020Q2

REPORT INFORMATION
  Report Type: Spontaneous
  Country: US (occurrence: US)
  Receive Date: 20200617
  Receipt Date: 20200617
  Transmission Date: 20200714
  Serious: Yes (Death, Hospitalization)
  Sender: FDA-Public Use
  Company Number: US-MYLANLABS-2020M1056921

PATIENT
  Age: 42 Year
  Sex: Male

DRUGS (2)
  1. METFORMIN [Suspect]
     Active Substance: METFORMIN HYDROCHLORIDE
     Indication: PRODUCT USED FOR UNKNOWN INDICATION
     Dosage: INGESTED 15-20G
     Route: 048
  2. INSULIN [Suspect]
     Active Substance: INSULIN NOS
     Indication: PRODUCT USED FOR UNKNOWN INDICATION
     Route: 048

REACTIONS (8)
  - Encephalopathy [Fatal]
  - Cerebral ischaemia [Fatal]
  - Hypotension [Fatal]
  - Intentional overdose [Fatal]
  - Lactic acidosis [Fatal]
  - Rhabdomyolysis [Fatal]
  - Sepsis [Fatal]
  - Hyperthermia [Fatal]
